FAERS Safety Report 22250383 (Version 1)
Quarter: 2023Q2

REPORT INFORMATION
  Report Type: Spontaneous
  Country: US (occurrence: None)
  Receive Date: 20230424
  Receipt Date: 20230424
  Transmission Date: 20230722
  Serious: No
  Sender: FDA-Public Use
  Company Number: None

PATIENT
  Age: 82 Year
  Sex: Male
  Weight: 77.85 kg

DRUGS (4)
  1. REPATHA [Suspect]
     Active Substance: EVOLOCUMAB
     Indication: Blood cholesterol increased
     Dosage: FREQUENCY : EVERY OTHER WEEK;?
     Route: 058
  2. PROZAC [Concomitant]
     Active Substance: FLUOXETINE HYDROCHLORIDE
  3. vitamins D [Concomitant]
  4. fometadine [Concomitant]

REACTIONS (1)
  - Myositis [None]

NARRATIVE: CASE EVENT DATE: 20230313
